FAERS Safety Report 23734835 (Version 3)
Quarter: 2024Q2

REPORT INFORMATION
  Report Type: Report from Study
  Country: US (occurrence: US)
  Receive Date: 20240412
  Receipt Date: 20240508
  Transmission Date: 20240716
  Serious: Yes (Hospitalization, Other)
  Sender: FDA-Public Use
  Company Number: US-ABBVIE-5714033

PATIENT
  Sex: Female

DRUGS (3)
  1. VENCLEXTA [Suspect]
     Active Substance: VENETOCLAX
     Indication: Acute myeloid leukaemia
     Route: 048
     Dates: start: 20240328
  2. VENCLEXTA [Suspect]
     Active Substance: VENETOCLAX
     Indication: Acute myeloid leukaemia
     Dosage: LAST ADMIN DATE: 2024
     Route: 048
     Dates: start: 202402
  3. XOSPATA [Concomitant]
     Active Substance: GILTERITINIB
     Indication: Acute myeloid leukaemia

REACTIONS (3)
  - Haemoglobin decreased [Recovering/Resolving]
  - Pyrexia [Unknown]
  - Transfusion reaction [Unknown]

NARRATIVE: CASE EVENT DATE: 20240101
